FAERS Safety Report 9265149 (Version 2)
Quarter: 2013Q2

REPORT INFORMATION
  Report Type: Spontaneous
  Country: US (occurrence: US)
  Receive Date: 20130501
  Receipt Date: 20130513
  Transmission Date: 20140414
  Serious: No
  Sender: FDA-Public Use
  Company Number: US-PFIZER INC-2013129852

PATIENT
  Age: 61 Year
  Sex: Male
  Weight: 81.63 kg

DRUGS (8)
  1. SUTENT [Suspect]
     Dosage: 50 MG, 1X/DAY
     Dates: start: 20130416
  2. SULAR [Concomitant]
     Dosage: UNK
  3. DIOVAN [Concomitant]
     Dosage: UNK
  4. PRILOSEC [Concomitant]
     Dosage: UNK
  5. ALLOPURINOL [Concomitant]
     Dosage: UNK
  6. VIAGRA [Concomitant]
     Dosage: UNK
  7. ONGLYZA [Concomitant]
     Dosage: UNK
  8. ZOFRAN [Concomitant]
     Dosage: UNK

REACTIONS (11)
  - Fatigue [Not Recovered/Not Resolved]
  - Hypersomnia [Unknown]
  - Pruritus [Unknown]
  - Headache [Unknown]
  - Abdominal pain lower [Unknown]
  - Abdominal distension [Not Recovered/Not Resolved]
  - Nausea [Recovered/Resolved]
  - Joint swelling [Recovered/Resolved]
  - Faeces hard [Unknown]
  - Abdominal discomfort [Not Recovered/Not Resolved]
  - Change of bowel habit [Unknown]
